FAERS Safety Report 25346002 (Version 4)
Quarter: 2025Q4

REPORT INFORMATION
  Report Type: Spontaneous
  Country: CA (occurrence: CA)
  Receive Date: 20250522
  Receipt Date: 20251001
  Transmission Date: 20260118
  Serious: Yes (Other)
  Sender: CELLTRION
  Company Number: CA-CELLTRION INC.-2025CA015198

PATIENT

DRUGS (1)
  1. INFLIXIMAB [Suspect]
     Active Substance: INFLIXIMAB
     Indication: Colitis ulcerative
     Dosage: 600 MG Q6WEEKS
     Route: 042
     Dates: start: 20250514

REACTIONS (4)
  - Condition aggravated [Unknown]
  - Headache [Unknown]
  - Overdose [Unknown]
  - Intentional product use issue [Unknown]
